FAERS Safety Report 6213301-1 (Version None)
Quarter: 2009Q2

REPORT INFORMATION
  Report Type: 
  Country: None (occurrence: None)
  Receive Date: 20090603
  Receipt Date: 20090528
  Transmission Date: 20091009
  Serious: Yes (Other)
  Sender: FDA-Public Use
  Company Number: US-ASTRAZENECA-2009UW13736

PATIENT
  Age: 87 Year
  Sex: Male
  Weight: 72.1 kg

DRUGS (2)
  1. CASODEX [Suspect]
     Indication: PROSTATE CANCER
     Route: 048
     Dates: start: 20080801
  2. UNSPECIFIED [Concomitant]
     Indication: PROSTATE CANCER

REACTIONS (2)
  - FALL [None]
  - HIP FRACTURE [None]
